FAERS Safety Report 5116832-0 (Version None)
Quarter: 2006Q3

REPORT INFORMATION
  Report Type: 
  Country: None (occurrence: None)
  Receive Date: 20060928
  Receipt Date: 20060918
  Transmission Date: 20061208
  Serious: Yes (Hospitalization)
  Sender: FDA-Public Use
  Company Number: NO-ABBOTT-06P-122-0344588-00

PATIENT
  Sex: Female

DRUGS (2)
  1. REDUCTIL 10MG [Suspect]
     Indication: OBESITY
     Route: 048
     Dates: start: 20051220, end: 20060210
  2. MEDROXYPROGESTERONE ACETATE [Concomitant]
     Indication: CONTRACEPTION
     Dosage: 150MG/ML
     Route: 030
     Dates: start: 20040602

REACTIONS (4)
  - FEELING ABNORMAL [None]
  - FEELING HOT [None]
  - PAIN [None]
  - SINUS TACHYCARDIA [None]
